FAERS Safety Report 5215651-4 (Version None)
Quarter: 2007Q1

REPORT INFORMATION
  Report Type: 
  Country: None (occurrence: None)
  Receive Date: 20070117
  Receipt Date: 20070110
  Transmission Date: 20070707
  Serious: Yes (Death, Life-Threatening, Hospitalization)
  Sender: FDA-Public Use
  Company Number: T03-USA-01606-01

PATIENT
  Age: 78 Year
  Sex: Male

DRUGS (9)
  1. MEMANTINE (DOUBLE BLINDED) (MEMANTINE) [Suspect]
     Indication: OPEN ANGLE GLAUCOMA
     Dates: end: 20020614
  2. WARFARIN SODIUM [Concomitant]
  3. DOXAZOSIN MESYLATE [Concomitant]
  4. DILACOR (DIGOXIN) [Concomitant]
  5. DONEPEZIL HYDROCHLORIDE [Concomitant]
  6. LORATADINE [Concomitant]
  7. SERTRALINE HYDROCHLORIDE [Concomitant]
  8. ATORVASTATIN CALCIUM [Concomitant]
  9. TEMAZEPAM [Concomitant]

REACTIONS (5)
  - GASTRITIS [None]
  - HYPOVOLAEMIA [None]
  - INFLUENZA LIKE ILLNESS [None]
  - PANCREATITIS [None]
  - RENAL FAILURE ACUTE [None]
